FAERS Safety Report 15662073 (Version 2)
Quarter: 2018Q4

REPORT INFORMATION
  Report Type: Spontaneous
  Country: US (occurrence: US)
  Receive Date: 20181127
  Receipt Date: 20181130
  Transmission Date: 20190205
  Serious: No
  Sender: FDA-Public Use
  Company Number: US-PFIZER INC-2018480317

PATIENT
  Age: 63 Year
  Sex: Female
  Weight: 80.29 kg

DRUGS (2)
  1. LYRICA [Suspect]
     Active Substance: PREGABALIN
     Indication: NEUROPATHY PERIPHERAL
  2. LYRICA [Suspect]
     Active Substance: PREGABALIN
     Indication: NEURALGIA
     Dosage: UNK (ONCE OR TWICE A DAY)
     Route: 048
     Dates: start: 20180613, end: 20180618

REACTIONS (3)
  - Muscle spasms [Recovering/Resolving]
  - Dysphonia [Unknown]
  - Arthralgia [Unknown]

NARRATIVE: CASE EVENT DATE: 20180614
